FAERS Safety Report 9353408 (Version 1)
Quarter: 2013Q2

REPORT INFORMATION
  Report Type: Report from Study
  Country: JP (occurrence: JP)
  Receive Date: 20130618
  Receipt Date: 20130618
  Transmission Date: 20140414
  Serious: Yes (Hospitalization)
  Sender: FDA-Public Use
  Company Number: JP-JNJFOC-20130609104

PATIENT
  Age: 42 Year
  Sex: Female
  Weight: 75 kg

DRUGS (2)
  1. STELARA [Suspect]
     Indication: PSORIASIS
     Route: 058
     Dates: start: 20121109, end: 20121109
  2. ISCOTIN [Suspect]
     Indication: PROPHYLAXIS
     Route: 048
     Dates: start: 20121019, end: 20121115

REACTIONS (2)
  - Hepatic function abnormal [Recovered/Resolved]
  - Oedema peripheral [Recovered/Resolved]
